FAERS Safety Report 18445767 (Version 7)
Quarter: 2021Q2

REPORT INFORMATION
  Report Type: Spontaneous
  Country: US (occurrence: US)
  Receive Date: 20201030
  Receipt Date: 20210422
  Transmission Date: 20210717
  Serious: Yes (Other)
  Sender: FDA-Public Use
  Company Number: US-PFIZER INC-2020084059

PATIENT
  Age: 67 Year
  Sex: Female

DRUGS (2)
  1. GENOTROPIN [Suspect]
     Active Substance: SOMATROPIN
     Indication: GROWTH HORMONE DEFICIENCY
     Dosage: 0.3 MG, DAILY
     Dates: start: 2010
  2. GENOTROPIN [Suspect]
     Active Substance: SOMATROPIN
     Dosage: 0.4 MG, 1X/DAY (0.4 NIGHTLY INJECTION)

REACTIONS (9)
  - Arrhythmia [Unknown]
  - Dysphonia [Unknown]
  - Device information output issue [Unknown]
  - Device use issue [Unknown]
  - Device breakage [Unknown]
  - Drug dose omission by device [Unknown]
  - Poor quality device used [Unknown]
  - Hypersensitivity [Unknown]
  - Device leakage [Unknown]

NARRATIVE: CASE EVENT DATE: 20201022
